FAERS Safety Report 4995532-1 (Version None)
Quarter: 2006Q2

REPORT INFORMATION
  Report Type: 
  Country: None (occurrence: None)
  Receive Date: 20060508
  Receipt Date: 20051221
  Transmission Date: 20061013
  Serious: Yes (Other)
  Sender: FDA-Public Use
  Company Number: US-ROCHE-430018

PATIENT
  Age: 16 Year
  Sex: Female
  Weight: 57.2 kg

DRUGS (1)
  1. ACCUTANE [Suspect]
     Indication: ACNE
     Route: 048
     Dates: start: 19941115, end: 19950515

REACTIONS (17)
  - ANAEMIA [None]
  - ARTHRALGIA [None]
  - COLITIS ULCERATIVE [None]
  - CONTUSION [None]
  - DEPRESSION [None]
  - DRUG HYPERSENSITIVITY [None]
  - HYPERVENTILATION [None]
  - INFLAMMATORY BOWEL DISEASE [None]
  - INSOMNIA [None]
  - LEUKOCYTOCLASTIC VASCULITIS [None]
  - MUSCLE SPASMS [None]
  - PSYCHIATRIC SYMPTOM [None]
  - RASH PRURITIC [None]
  - ROAD TRAFFIC ACCIDENT [None]
  - SUICIDAL IDEATION [None]
  - TONSILLITIS [None]
  - VIRAL INFECTION [None]
